FAERS Safety Report 9852299 (Version 1)
Quarter: 2014Q1

REPORT INFORMATION
  Report Type: Spontaneous
  Country: US (occurrence: None)
  Receive Date: 20140127
  Receipt Date: 20140127
  Transmission Date: 20141002
  Serious: Yes (Hospitalization)
  Sender: FDA-Public Use
  Company Number: 2139163

PATIENT
  Age: 24 Year
  Sex: Female

DRUGS (1)
  1. CIPROFLOXACIN [Suspect]
     Indication: URINARY TRACT INFECTION
     Dosage: NOT REPORTED UNKNOWN

REACTIONS (4)
  - Drug reaction with eosinophilia and systemic symptoms [None]
  - Diarrhoea [None]
  - Myalgia [None]
  - Pleural effusion [None]
